FAERS Safety Report 5288865-5 (Version None)
Quarter: 2007Q2

REPORT INFORMATION
  Report Type: 
  Country: None (occurrence: None)
  Receive Date: 20070405
  Receipt Date: 20070326
  Transmission Date: 20071010
  Serious: Yes (Hospitalization)
  Sender: FDA-Public Use
  Company Number: ES-PFIZER INC-2007023873

PATIENT
  Sex: Female

DRUGS (2)
  1. LYRICA [Suspect]
     Route: 048
     Dates: start: 20070303, end: 20070315
  2. AMITRIPTYLINE HCL [Concomitant]

REACTIONS (3)
  - DERMATITIS [None]
  - EPIDERMAL NECROSIS [None]
  - ERYTHEMA [None]
